FAERS Safety Report 13996496 (Version 1)
Quarter: 2017Q3

REPORT INFORMATION
  Report Type: Spontaneous
  Country: US (occurrence: US)
  Receive Date: 20170921
  Receipt Date: 20170921
  Transmission Date: 20171128
  Serious: Yes (Other)
  Sender: FDA-Public Use
  Company Number: US-TEVA-722606USA

PATIENT
  Sex: Female

DRUGS (2)
  1. CARVEDILOL. [Suspect]
     Active Substance: CARVEDILOL
     Dates: start: 2013
  2. CARVEDILOL. [Suspect]
     Active Substance: CARVEDILOL
     Indication: HYPERTENSION
     Dates: start: 201610

REACTIONS (4)
  - Heart rate increased [Unknown]
  - Ventricular extrasystoles [Unknown]
  - Heart rate decreased [Unknown]
  - Heart rate irregular [Unknown]
